FAERS Safety Report 4767191-4 (Version None)
Quarter: 2005Q3

REPORT INFORMATION
  Report Type: 
  Country: None (occurrence: None)
  Receive Date: 20050913
  Receipt Date: 20050622
  Transmission Date: 20060218
  Serious: Yes (Hospitalization, Other)
  Sender: FDA-Public Use
  Company Number: 200515829GDDC

PATIENT
  Age: 46 Year
  Sex: Female

DRUGS (3)
  1. ARAVA [Suspect]
     Indication: RHEUMATOID ARTHRITIS
     Route: 048
     Dates: start: 20020615, end: 20040901
  2. LOSEC [Concomitant]
     Route: 048
  3. TRAMADOL HCL [Concomitant]
     Indication: PAIN
     Dosage: DOSE: 50-100
     Route: 048

REACTIONS (1)
  - LIVER FUNCTION TEST ABNORMAL [None]
